FAERS Safety Report 25874096 (Version 1)
Quarter: 2025Q4

REPORT INFORMATION
  Report Type: Spontaneous
  Country: US (occurrence: US)
  Receive Date: 20251002
  Receipt Date: 20251002
  Transmission Date: 20260118
  Serious: Yes (Death, Hospitalization)
  Sender: PFIZER
  Company Number: US-PFIZER INC-202500056367

PATIENT
  Age: 91 Year
  Sex: Female
  Weight: 53.52 kg

DRUGS (2)
  1. IBRANCE [Suspect]
     Active Substance: PALBOCICLIB
     Indication: Breast cancer metastatic
     Dosage: 100 MG
  2. IBRANCE [Suspect]
     Active Substance: PALBOCICLIB
     Indication: Breast cancer female
     Dosage: ONE TABLET DAILY FOR 20 DAYS FOR 21 DAYS 7 DAYS OFF/ONE TABLET DAILY FOR 21 DAYS AND THEN 7 DAYS OFF
     Route: 048

REACTIONS (3)
  - Pleural effusion [Fatal]
  - Dyspnoea [Fatal]
  - Respiratory failure [Fatal]

NARRATIVE: CASE EVENT DATE: 20250801
